FAERS Safety Report 5601685-4 (Version None)
Quarter: 2008Q1

REPORT INFORMATION
  Report Type: 
  Country: None (occurrence: None)
  Receive Date: 20080124
  Receipt Date: 20080109
  Transmission Date: 20080703
  Serious: Yes (Hospitalization, Other)
  Sender: FDA-Public Use
  Company Number: TW-GENENTECH-254377

PATIENT
  Sex: Female

DRUGS (2)
  1. AVASTIN [Suspect]
     Indication: COLON CANCER
     Dosage: UNK, UNKNOWN
     Route: 042
     Dates: start: 20070615, end: 20070101
  2. XELODA [Suspect]
     Indication: COLON CANCER
     Route: 048
     Dates: start: 20070615

REACTIONS (1)
  - GENERALISED OEDEMA [None]
